FAERS Safety Report 23732928 (Version 1)
Quarter: 2024Q2

REPORT INFORMATION
  Report Type: Spontaneous
  Country: US (occurrence: None)
  Receive Date: 20240411
  Receipt Date: 20240411
  Transmission Date: 20240716
  Serious: No
  Sender: FDA-Public Use
  Company Number: None

PATIENT
  Age: 67 Year
  Sex: Female
  Weight: 90.72 kg

DRUGS (7)
  1. DUPIXENT [Suspect]
     Active Substance: DUPILUMAB
     Dosage: OTHER FREQUENCY : EVERY 14 DAYS;?
     Route: 058
     Dates: start: 20240118
  2. PREDNISONE [Concomitant]
     Active Substance: PREDNISONE
     Dates: start: 20240229
  3. Multivitamin tablets [Concomitant]
     Dates: start: 20240229
  4. Pimecrolimus 1% Cream [Concomitant]
     Dates: start: 20240229
  5. Escitalopram Oxalate 20 mg tablets [Concomitant]
     Dates: start: 20240229
  6. Clobetasol Prop 0.05% Cream [Concomitant]
     Dates: start: 20240229
  7. Dextroamphetamine Sulfate 5mg tablets [Concomitant]
     Dates: start: 20240229

REACTIONS (1)
  - Pruritus [None]

NARRATIVE: CASE EVENT DATE: 20240411
